FAERS Safety Report 17231335 (Version 4)
Quarter: 2020Q2

REPORT INFORMATION
  Report Type: Spontaneous
  Country: US (occurrence: US)
  Receive Date: 20200103
  Receipt Date: 20200623
  Transmission Date: 20200713
  Serious: No
  Sender: FDA-Public Use
  Company Number: US-PFIZER INC-2019563295

PATIENT
  Age: 63 Year
  Sex: Female

DRUGS (11)
  1. DOCETAXEL. [Suspect]
     Active Substance: DOCETAXEL
     Dosage: 150 MG, CYCLIC (EVERY 3 WEEKS FOR 3 CYCLES)
     Dates: start: 20130828, end: 20131009
  2. DOCETAXEL SANDOZ [Suspect]
     Active Substance: DOCETAXEL
     Dosage: 150 MG, CYCLIC (EVERY 3 WEEKS FOR 3 CYCLES)
     Dates: start: 20130828, end: 20131009
  3. PARAPLATIN [Concomitant]
     Active Substance: CARBOPLATIN
     Indication: CHEMOTHERAPY
     Dosage: 825 MG, SINGLE
     Dates: start: 20130807, end: 20130807
  4. LIOTHYRONINE [Concomitant]
     Active Substance: LIOTHYRONINE
     Indication: THYROID DISORDER
     Dosage: 5 MG
  5. DOCETAXEL. [Suspect]
     Active Substance: DOCETAXEL
     Dosage: 135 MG, SINGLE
     Dates: start: 20130807, end: 20130807
  6. PARAPLATIN [Concomitant]
     Active Substance: CARBOPLATIN
     Dosage: 900 MG
     Dates: start: 20130828, end: 20131009
  7. DOCETAXEL SANDOZ [Suspect]
     Active Substance: DOCETAXEL
     Dosage: 135 MG, SINGLE
     Dates: start: 20130807, end: 20130807
  8. DOCETAXEL. [Suspect]
     Active Substance: DOCETAXEL
     Indication: BREAST CANCER FEMALE
     Dosage: 97 MG, SINGLE
     Dates: start: 20130717, end: 20130717
  9. DOCETAXEL SANDOZ [Suspect]
     Active Substance: DOCETAXEL
     Indication: BREAST CANCER FEMALE
     Dosage: 97 MG, SINGLE
     Dates: start: 20130717, end: 20130717
  10. DOCETAXEL. [Suspect]
     Active Substance: DOCETAXEL
     Dosage: UNK
     Dates: start: 20130709, end: 20131216
  11. NEOSAR [Concomitant]
     Active Substance: CYCLOPHOSPHAMIDE
     Indication: CHEMOTHERAPY
     Dosage: 970 MG, SINGLE
     Dates: start: 20130717, end: 20130717

REACTIONS (5)
  - Hair disorder [Not Recovered/Not Resolved]
  - Madarosis [Not Recovered/Not Resolved]
  - Alopecia [Not Recovered/Not Resolved]
  - Hair colour changes [Not Recovered/Not Resolved]
  - Hair texture abnormal [Not Recovered/Not Resolved]

NARRATIVE: CASE EVENT DATE: 20140601
